FAERS Safety Report 4289811-3 (Version None)
Quarter: 2004Q1

REPORT INFORMATION
  Report Type: 
  Country: None (occurrence: None)
  Receive Date: 20040210
  Receipt Date: 20040205
  Transmission Date: 20041129
  Serious: Yes (Hospitalization)
  Sender: FDA-Public Use
  Company Number: DE-GLAXOSMITHKLINE-D0043024A

PATIENT
  Sex: Female

DRUGS (1)
  1. IMIGRAN [Suspect]
     Route: 065

REACTIONS (1)
  - RENAL INFARCT [None]
